FAERS Safety Report 20162988 (Version 5)
Quarter: 2022Q1

REPORT INFORMATION
  Report Type: Report from Study
  Country: JP (occurrence: JP)
  Receive Date: 20211209
  Receipt Date: 20220206
  Transmission Date: 20220423
  Serious: Yes (Hospitalization)
  Sender: FDA-Public Use
  Company Number: JP-ONO-2021JP029531

PATIENT
  Age: 85 Year
  Sex: Male
  Weight: 51.65 kg

DRUGS (14)
  1. NIVOLUMAB [Suspect]
     Active Substance: NIVOLUMAB
     Indication: Oesophageal carcinoma
     Dosage: 360 MILLIGRAM
     Route: 041
     Dates: start: 20211111, end: 20211111
  2. ERIBULIN MESYLATE [Suspect]
     Active Substance: ERIBULIN MESYLATE
     Indication: Oesophageal carcinoma
     Dosage: 2.1 MG/M2 (3.21 MG)
     Route: 065
     Dates: start: 20211111, end: 20211111
  3. GRANISETRON [Concomitant]
     Active Substance: GRANISETRON
     Indication: Prophylaxis of nausea and vomiting
     Dosage: 50 MILLILITER, Q3WK
     Route: 042
     Dates: start: 20211111, end: 20211111
  4. POLARAMINE [Concomitant]
     Active Substance: DEXCHLORPHENIRAMINE MALEATE
     Indication: Allergy prophylaxis
     Dosage: 5 MILLIGRAM, Q3WK
     Route: 042
     Dates: start: 20211111, end: 20211111
  5. CALONAL [Concomitant]
     Active Substance: ACETAMINOPHEN
     Indication: Pyrexia
     Dosage: 1 DOSAGE FORM
     Route: 048
     Dates: start: 20211111
  6. CALCIUM CHLORIDE\POTASSIUM CHLORIDE\SODIUM CHLORIDE\SODIUM LACTATE\SOR [Concomitant]
     Active Substance: CALCIUM CHLORIDE\POTASSIUM CHLORIDE\SODIUM CHLORIDE\SODIUM LACTATE\SORBITOL
     Indication: Stomatitis
     Dosage: 1000 MILLILITER, EVERYDAY
     Route: 042
     Dates: start: 20211119, end: 20211126
  7. CALCIUM CHLORIDE\POTASSIUM CHLORIDE\SODIUM CHLORIDE\SODIUM LACTATE\SOR [Concomitant]
     Active Substance: CALCIUM CHLORIDE\POTASSIUM CHLORIDE\SODIUM CHLORIDE\SODIUM LACTATE\SORBITOL
     Dosage: 500 MILLILITER, EVERYDAY
     Route: 042
     Dates: start: 20211127, end: 20211209
  8. MAGNESIUM OXIDE [Concomitant]
     Active Substance: MAGNESIUM OXIDE
     Indication: Constipation
     Dosage: 1 DF, APPROPRIATELY
     Route: 048
     Dates: start: 20181220
  9. ACETAMINOPHEN [Concomitant]
     Active Substance: ACETAMINOPHEN
     Indication: Pyrexia
     Dosage: 500 MG, APPROPRIATELY
     Route: 042
     Dates: start: 20211119, end: 20211121
  10. LEVOCETIRIZINE HYDROCHLORIDE [Concomitant]
     Active Substance: LEVOCETIRIZINE HYDROCHLORIDE
     Indication: Rash
     Dosage: 1 DF, EVERYDAY
     Route: 048
     Dates: start: 20211121
  11. CLOBETASOL [Concomitant]
     Active Substance: CLOBETASOL
     Indication: Rash
     Dosage: APPROPRIATE AMOUNT, APPROPRIATELY
     Route: 061
     Dates: start: 20211119
  12. GLYCOSAMINOGLYCANS [Concomitant]
     Active Substance: GLYCOSAMINOGLYCANS
     Indication: Rash
     Dosage: APPROPRIATE AMOUNT, APPROPRIATELY
     Route: 061
     Dates: start: 20211119
  13. CARBOCYSTEINE [Concomitant]
     Active Substance: CARBOCYSTEINE
     Indication: Oesophageal carcinoma
     Dosage: 1 DF, Q8H
     Route: 048
     Dates: start: 20211128, end: 20211129
  14. AMBROXOL HYDROCHLORIDE [Concomitant]
     Active Substance: AMBROXOL HYDROCHLORIDE
     Indication: Oesophageal carcinoma
     Dosage: 1 DF, Q8H
     Route: 048
     Dates: start: 20211129

REACTIONS (2)
  - Neutrophil count decreased [Recovered/Resolved]
  - Stomatitis [Recovered/Resolved]

NARRATIVE: CASE EVENT DATE: 20211119
